FAERS Safety Report 5705563-1 (Version None)
Quarter: 2008Q2

REPORT INFORMATION
  Report Type: 
  Country: None (occurrence: None)
  Receive Date: 20080415
  Receipt Date: 20080410
  Transmission Date: 20081010
  Serious: Yes (Death)
  Sender: FDA-Public Use
  Company Number: US-BRISTOL-MYERS SQUIBB COMPANY-14146666

PATIENT
  Age: 16 Year
  Sex: Female

DRUGS (2)
  1. ABILIFY [Suspect]
     Indication: BIPOLAR DISORDER
     Dosage: 2.5MG IN THE MORNING AND 5MG IN THE EVENING
  2. TOPAMAX [Concomitant]

REACTIONS (1)
  - DEATH [None]
